FAERS Safety Report 19486301 (Version 1)
Quarter: 2021Q3

REPORT INFORMATION
  Report Type: Spontaneous
  Country: CN (occurrence: CN)
  Receive Date: 20210702
  Receipt Date: 20210702
  Transmission Date: 20211014
  Serious: Yes (Hospitalization, Other)
  Sender: FDA-Public Use
  Company Number: CN-ACCORD-230418

PATIENT
  Age: 34 Year
  Sex: Male
  Weight: 37 kg

DRUGS (4)
  1. METHYLPREDNISOLONE. [Suspect]
     Active Substance: METHYLPREDNISOLONE
     Indication: IMMUNOSUPPRESSION
     Dosage: INDUCTION THERAPY, 1.5 G EXPERIENTIALLY (500 MG/D FOR THREE DAYS)
     Dates: start: 2008, end: 201602
  2. TACROLIMUS. [Suspect]
     Active Substance: TACROLIMUS
     Indication: IMMUNOSUPPRESSION
     Dosage: MAINTENANCE
     Dates: start: 2008, end: 201602
  3. MYCOPHENOLIC ACID. [Suspect]
     Active Substance: MYCOPHENOLIC ACID
     Indication: IMMUNOSUPPRESSION
     Dosage: MAINTENANCE
     Dates: start: 2008, end: 201602
  4. PREDNISONE. [Suspect]
     Active Substance: PREDNISONE
     Indication: IMMUNOSUPPRESSION
     Dosage: MAINTENANCE
     Dates: start: 2008, end: 201602

REACTIONS (1)
  - Chromophobe renal cell carcinoma [Unknown]

NARRATIVE: CASE EVENT DATE: 201602
